FAERS Safety Report 8141884-3 (Version None)
Quarter: 2012Q1

REPORT INFORMATION
  Report Type: 
  Country: None (occurrence: None)
  Receive Date: 20120216
  Receipt Date: 20120209
  Transmission Date: 20120608
  Serious: Yes (Hospitalization)
  Sender: FDA-Public Use
  Company Number: US-GLAXOSMITHKLINE-A0877265A

PATIENT
  Age: 52 Year
  Sex: Male

DRUGS (1)
  1. AVANDIA [Suspect]
     Indication: DIABETES MELLITUS
     Dosage: 2MG PER DAY
     Route: 048
     Dates: end: 20100501

REACTIONS (5)
  - CARDIAC DISORDER [None]
  - CHEST PAIN [None]
  - FLUID RETENTION [None]
  - CATHETERISATION CARDIAC [None]
  - MYOCARDIAL ISCHAEMIA [None]
